FAERS Safety Report 17434140 (Version 2)
Quarter: 2020Q1

REPORT INFORMATION
  Report Type: Spontaneous
  Country: CN (occurrence: CN)
  Receive Date: 20200219
  Receipt Date: 20200312
  Transmission Date: 20200409
  Serious: Yes (Life-Threatening, Hospitalization, Other)
  Sender: FDA-Public Use
  Company Number: CN-STRIDES ARCOLAB LIMITED-2020SP001432

PATIENT
  Age: 85 Year
  Sex: Male

DRUGS (24)
  1. CIPROFLOXACIN. [Suspect]
     Active Substance: CIPROFLOXACIN
     Indication: PNEUMONIA
     Dosage: UNK
     Route: 065
  2. MOXIFLOXACIN. [Suspect]
     Active Substance: MOXIFLOXACIN
     Indication: PSEUDOMONAS INFECTION
  3. MOXIFLOXACIN. [Suspect]
     Active Substance: MOXIFLOXACIN
     Indication: STENOTROPHOMONAS INFECTION
  4. FLUCONAZOLE. [Suspect]
     Active Substance: FLUCONAZOLE
     Indication: PNEUMONIA
     Dosage: UNK, LONG TERM
     Route: 065
  5. MEROPENEM. [Suspect]
     Active Substance: MEROPENEM
     Indication: STENOTROPHOMONAS INFECTION
  6. ETIMICIN [Suspect]
     Active Substance: ETIMICIN SULFATE
     Indication: STENOTROPHOMONAS INFECTION
  7. FLUCONAZOLE. [Suspect]
     Active Substance: FLUCONAZOLE
     Indication: PSEUDOMONAS INFECTION
  8. FLUCONAZOLE. [Suspect]
     Active Substance: FLUCONAZOLE
     Indication: STENOTROPHOMONAS INFECTION
  9. MOXIFLOXACIN. [Suspect]
     Active Substance: MOXIFLOXACIN
     Indication: PNEUMONIA
     Dosage: UNK
     Route: 065
  10. PIPERACILLIN/TAZOBACTAM [Suspect]
     Active Substance: PIPERACILLIN SODIUM\TAZOBACTAM SODIUM
     Indication: STENOTROPHOMONAS INFECTION
  11. VANCOMYCIN [Suspect]
     Active Substance: VANCOMYCIN
     Indication: PNEUMONIA
     Dosage: UNK
     Route: 065
  12. VANCOMYCIN [Suspect]
     Active Substance: VANCOMYCIN
     Indication: STENOTROPHOMONAS INFECTION
  13. ETIMICIN [Suspect]
     Active Substance: ETIMICIN SULFATE
     Indication: PNEUMONIA
     Dosage: UNK
     Route: 065
  14. MEROPENEM. [Suspect]
     Active Substance: MEROPENEM
     Indication: PNEUMONIA
     Dosage: UNK
     Route: 065
  15. MEROPENEM. [Suspect]
     Active Substance: MEROPENEM
     Indication: PSEUDOMONAS INFECTION
  16. ETIMICIN [Suspect]
     Active Substance: ETIMICIN SULFATE
     Indication: PSEUDOMONAS INFECTION
  17. LINEZOLID. [Suspect]
     Active Substance: LINEZOLID
     Indication: PNEUMONIA
     Dosage: UNK
     Route: 065
  18. PIPERACILLIN/TAZOBACTAM [Suspect]
     Active Substance: PIPERACILLIN SODIUM\TAZOBACTAM SODIUM
     Indication: PNEUMONIA
     Dosage: UNK
     Route: 065
  19. PIPERACILLIN/TAZOBACTAM [Suspect]
     Active Substance: PIPERACILLIN SODIUM\TAZOBACTAM SODIUM
     Indication: PSEUDOMONAS INFECTION
     Dosage: UNK (TAZOCIN)
     Route: 065
  20. VANCOMYCIN [Suspect]
     Active Substance: VANCOMYCIN
     Indication: PSEUDOMONAS INFECTION
  21. CIPROFLOXACIN. [Suspect]
     Active Substance: CIPROFLOXACIN
     Indication: PSEUDOMONAS INFECTION
  22. CIPROFLOXACIN. [Suspect]
     Active Substance: CIPROFLOXACIN
     Indication: STENOTROPHOMONAS INFECTION
  23. LINEZOLID. [Suspect]
     Active Substance: LINEZOLID
     Indication: PSEUDOMONAS INFECTION
  24. LINEZOLID. [Suspect]
     Active Substance: LINEZOLID
     Indication: STENOTROPHOMONAS INFECTION

REACTIONS (13)
  - Cardiac dysfunction [Recovered/Resolved]
  - Deep vein thrombosis [Unknown]
  - Hepatic function abnormal [Recovered/Resolved]
  - Lung opacity [Unknown]
  - Cough [Unknown]
  - Gastrointestinal haemorrhage [Unknown]
  - Renal impairment [Recovered/Resolved]
  - Respiratory failure [Recovered/Resolved]
  - Fungal infection [Recovered/Resolved]
  - Pulmonary cavitation [Recovered/Resolved]
  - Multiple organ dysfunction syndrome [Recovered/Resolved]
  - Altered state of consciousness [Unknown]
  - Pneumonia fungal [Recovered/Resolved]
